FAERS Safety Report 14453085 (Version 4)
Quarter: 2021Q2

REPORT INFORMATION
  Report Type: Report from Study
  Country: JP (occurrence: JP)
  Receive Date: 20180129
  Receipt Date: 20210513
  Transmission Date: 20210716
  Serious: Yes (Hospitalization)
  Sender: FDA-Public Use
  Company Number: JP-ROCHE-2060992

PATIENT
  Age: 61 Year
  Sex: Male
  Weight: 68.3 kg

DRUGS (11)
  1. LANSOPRAZOLE. [Concomitant]
     Active Substance: LANSOPRAZOLE
     Indication: GASTRIC ULCER
     Dates: start: 20170411
  2. DOVOBET [Concomitant]
     Active Substance: BETAMETHASONE\CALCIPOTRIENE
     Indication: RASH
     Route: 061
     Dates: start: 20170808, end: 20180131
  3. VONOPRAZAN FUMARATE [Concomitant]
     Active Substance: VONOPRAZAN FUMARATE
     Indication: GASTRIC ULCER
     Dates: start: 20170725
  4. OXAROL [Concomitant]
     Active Substance: MAXACALCITOL
     Indication: RASH
     Dates: start: 20170809
  5. ATEZOLIZUMAB. [Suspect]
     Active Substance: ATEZOLIZUMAB
     Indication: NON-SMALL CELL LUNG CANCER STAGE IV
     Dosage: DATE OF MOST RECENT DOSE: 11/JAN/2018, AT 14:04
     Route: 041
     Dates: start: 20170302
  6. ANORO ELLIPTA [Concomitant]
     Active Substance: UMECLIDINIUM BROMIDE\VILANTEROL TRIFENATATE
     Indication: CHRONIC OBSTRUCTIVE PULMONARY DISEASE
     Dates: start: 20170302
  7. LOXOPROFEN SODIUM [Concomitant]
     Active Substance: LOXOPROFEN SODIUM
     Indication: WOUND COMPLICATION
  8. KETOPROFEN. [Concomitant]
     Active Substance: KETOPROFEN
     Indication: ARTHRALGIA
     Dates: start: 20180128, end: 20180130
  9. VONOPRAZAN FUMARATE [Concomitant]
     Active Substance: VONOPRAZAN FUMARATE
     Indication: GASTRIC ULCER
     Dates: start: 20170725
  10. OSELTAMIVIR PHOSPHATE. [Concomitant]
     Active Substance: OSELTAMIVIR PHOSPHATE
     Indication: INFLUENZA
     Dates: start: 20191024, end: 20191029
  11. BISOPROLOL [Concomitant]
     Active Substance: BISOPROLOL
     Indication: ATRIAL FIBRILLATION
     Dates: start: 20180123, end: 20180206

REACTIONS (1)
  - Pneumonia [Recovered/Resolved]

NARRATIVE: CASE EVENT DATE: 20180117
